FAERS Safety Report 7225048-3 (Version None)
Quarter: 2011Q1

REPORT INFORMATION
  Report Type: 
  Country: None (occurrence: None)
  Receive Date: 20110107
  Receipt Date: 20110107
  Transmission Date: 20110831
  Serious: No
  Sender: FDA-Public Use
  Company Number: None

PATIENT
  Age: 52 Year
  Sex: Female
  Weight: 58.0604 kg

DRUGS (1)
  1. NORETHINDRONE [Suspect]
     Indication: MENORRHAGIA
     Dosage: 1 TABLET TWICE / DAY PO
     Route: 048
     Dates: start: 20101224, end: 20101231

REACTIONS (1)
  - RASH PRURITIC [None]
